FAERS Safety Report 15131489 (Version 1)
Quarter: 2018Q3

REPORT INFORMATION
  Report Type: Spontaneous
  Country: GB (occurrence: GB)
  Receive Date: 20180711
  Receipt Date: 20180711
  Transmission Date: 20181010
  Serious: Yes (Other)
  Sender: FDA-Public Use
  Company Number: GB-MYLANLABS-2018M1048847

PATIENT

DRUGS (3)
  1. LAMIVUDINE. [Suspect]
     Active Substance: LAMIVUDINE
     Indication: PERINATAL HIV INFECTION
  2. ZIDOVUDINE. [Suspect]
     Active Substance: ZIDOVUDINE
     Indication: PERINATAL HIV INFECTION
  3. EFAVIRENZ. [Suspect]
     Active Substance: EFAVIRENZ
     Indication: PERINATAL HIV INFECTION

REACTIONS (1)
  - Stevens-Johnson syndrome [Recovered/Resolved]
